FAERS Safety Report 9478394 (Version 3)
Quarter: 2013Q4

REPORT INFORMATION
  Report Type: Spontaneous
  Country: JP (occurrence: JP)
  Receive Date: 20130827
  Receipt Date: 20131028
  Transmission Date: 20140711
  Serious: Yes (Hospitalization)
  Sender: FDA-Public Use
  Company Number: JP-JNJFOC-20130812502

PATIENT
  Age: 67 Year
  Sex: Female
  Weight: 57 kg

DRUGS (7)
  1. REMICADE [Suspect]
     Indication: RHEUMATOID ARTHRITIS
     Route: 042
     Dates: start: 20120113
  2. REMICADE [Suspect]
     Indication: RHEUMATOID ARTHRITIS
     Dosage: ELEVENTH INFUSION
     Route: 042
     Dates: start: 20130520, end: 20130613
  3. ISONIAZID [Suspect]
     Indication: PERITONEAL TUBERCULOSIS
     Route: 048
     Dates: start: 20130625, end: 20130707
  4. ISONIAZID [Suspect]
     Indication: PERITONEAL TUBERCULOSIS
     Route: 048
     Dates: start: 20130719, end: 20130725
  5. ETHAMBUTOL [Suspect]
     Indication: PERITONEAL TUBERCULOSIS
     Route: 048
     Dates: start: 20130625, end: 20130707
  6. ETHAMBUTOL [Suspect]
     Indication: PERITONEAL TUBERCULOSIS
     Route: 048
     Dates: start: 20130719
  7. METHOTREXATE [Concomitant]
     Indication: RHEUMATOID ARTHRITIS
     Route: 048
     Dates: end: 20130613

REACTIONS (2)
  - Peritoneal tuberculosis [Recovering/Resolving]
  - Hepatic function abnormal [Unknown]
